FAERS Safety Report 16567849 (Version 1)
Quarter: 2019Q3

REPORT INFORMATION
  Report Type: Spontaneous
  Country: US (occurrence: US)
  Receive Date: 20190712
  Receipt Date: 20190712
  Transmission Date: 20191004
  Serious: No
  Sender: FDA-Public Use
  Company Number: US-TEVA-2019-US-1073376

PATIENT
  Sex: Male
  Weight: 102.97 kg

DRUGS (6)
  1. CARVEDILOL. [Concomitant]
     Active Substance: CARVEDILOL
     Dosage: 25 MILLIGRAM DAILY;
     Route: 065
     Dates: start: 2006, end: 201906
  2. LYRICA [Concomitant]
     Active Substance: PREGABALIN
     Indication: NEURALGIA
     Dosage: 300 MILLIGRAM DAILY;
     Route: 065
  3. SOTALOL. [Concomitant]
     Active Substance: SOTALOL
     Dates: start: 2006, end: 201906
  4. COREG [Concomitant]
     Active Substance: CARVEDILOL
  5. ACETAMINOPHEN AND HYDROCODONE (GENERIC VICODINE) [Suspect]
     Active Substance: ACETAMINOPHEN\HYDROCODONE BITARTRATE
     Dosage: DOSE 325MG ACETAMINOPHEN AND 10MG HYDROCODONE, EVERY SIX HOURS AS NEEDED
     Route: 065
  6. NORCO [Concomitant]
     Active Substance: ACETAMINOPHEN\HYDROCODONE BITARTRATE

REACTIONS (5)
  - Lip swelling [Unknown]
  - Drug hypersensitivity [Unknown]
  - Swollen tongue [Unknown]
  - Neuralgia [Unknown]
  - Furuncle [Unknown]
